FAERS Safety Report 15709235 (Version 1)
Quarter: 2018Q4

REPORT INFORMATION
  Report Type: Spontaneous
  Country: US (occurrence: US)
  Receive Date: 20181128
  Receipt Date: 20181128
  Transmission Date: 20190205
  Serious: Yes (Death)
  Sender: FDA-Public Use
  Company Number: None

PATIENT
  Age: 68 Year
  Sex: Female

DRUGS (11)
  1. POTASSIUM CL [Suspect]
     Active Substance: POTASSIUM CHLORIDE
  2. METFORMIN [Concomitant]
     Active Substance: METFORMIN HYDROCHLORIDE
  3. GABAPENTIN. [Suspect]
     Active Substance: GABAPENTIN
  4. PIOGLITAZONE. [Concomitant]
     Active Substance: PIOGLITAZONE
  5. IBRANCE [Suspect]
     Active Substance: PALBOCICLIB
     Indication: BONE CANCER
     Route: 048
     Dates: start: 201711, end: 20181112
  6. SIMVASTATIN. [Concomitant]
     Active Substance: SIMVASTATIN
  7. DESONIDE. [Concomitant]
     Active Substance: DESONIDE
  8. EZETIMIBE. [Concomitant]
     Active Substance: EZETIMIBE
  9. LETROZOLE  TABLET [Suspect]
     Active Substance: LETROZOLE
     Indication: BONE CANCER
     Dosage: ?          OTHER DOSE:2.5MG;?
     Route: 048
     Dates: start: 201711, end: 20181112
  10. CRM [Concomitant]
  11. MONTELUKAST [Concomitant]
     Active Substance: MONTELUKAST SODIUM

REACTIONS (1)
  - Death [None]

NARRATIVE: CASE EVENT DATE: 20181112
